FAERS Safety Report 7171820-8 (Version None)
Quarter: 2010Q4

REPORT INFORMATION
  Report Type: 
  Country: None (occurrence: None)
  Receive Date: 20101217
  Receipt Date: 20100128
  Transmission Date: 20110411
  Serious: No
  Sender: FDA-Public Use
  Company Number: US-AMGEN-KDL389200

PATIENT

DRUGS (15)
  1. ENBREL [Suspect]
     Indication: PRODUCT USED FOR UNKNOWN INDICATION
     Dosage: 50 MG, QWK
     Route: 058
  2. DULOXETIME HYDROCHLORIDE [Concomitant]
     Dosage: 600 MG, UNK
  3. DULOXETIME HYDROCHLORIDE [Concomitant]
     Dosage: 30 MG, UNK
  4. ROPINIROLE HYDROCHLORIDE [Concomitant]
     Dosage: 1 MG, UNK
  5. CELECOXIB [Concomitant]
     Dosage: 200 MG, UNK
  6. TRAMADOL HCL [Concomitant]
     Dosage: 500 MG, UNK
  7. TRAZODONE HCL [Concomitant]
     Dosage: 100 MG, UNK
  8. CLONAZEPAM [Concomitant]
     Dosage: 1 MG, UNK
  9. AZITHROMYCIN [Concomitant]
     Dosage: 500 MG, UNK
  10. OMEPRAZOLE [Concomitant]
     Dosage: 20 MG, UNK
  11. LEVOTHYROXINE SODIUM [Concomitant]
     Dosage: 137 A?G, UNK
  12. CALCIUM WITH VITAMIN D [Concomitant]
     Dosage: UNK UNK, UNK
  13. MULTI-VITAMINS [Concomitant]
     Dosage: UNK UNK, UNK
  14. ASPIRIN [Concomitant]
     Dosage: 81 MG, UNK
  15. GUAIFENESIN [Concomitant]
     Dosage: UNK UNK, UNK

REACTIONS (2)
  - UPPER RESPIRATORY TRACT INFECTION [None]
  - URINARY TRACT INFECTION [None]
